FAERS Safety Report 24868366 (Version 1)
Quarter: 2025Q1

REPORT INFORMATION
  Report Type: Spontaneous
  Country: FR (occurrence: FR)
  Receive Date: 20250121
  Receipt Date: 20250121
  Transmission Date: 20250409
  Serious: Yes (Other)
  Sender: MYLAN
  Company Number: None

PATIENT
  Age: 21 Year
  Sex: Female
  Weight: 60 kg

DRUGS (2)
  1. ALPRAZOLAM [Suspect]
     Active Substance: ALPRAZOLAM
     Indication: Product used for unknown indication
     Route: 048
     Dates: start: 20241023
  2. VENLAFAXINE [Suspect]
     Active Substance: VENLAFAXINE HYDROCHLORIDE
     Indication: Product used for unknown indication
     Route: 048
     Dates: start: 20241023

REACTIONS (5)
  - Drug use disorder [Unknown]
  - Mydriasis [Unknown]
  - Sinus tachycardia [Unknown]
  - Tremor [Unknown]
  - Confusional state [Unknown]

NARRATIVE: CASE EVENT DATE: 20241023
